FAERS Safety Report 12843311 (Version 1)
Quarter: 2016Q4

REPORT INFORMATION
  Report Type: Spontaneous
  Country: US (occurrence: US)
  Receive Date: 20161013
  Receipt Date: 20161013
  Transmission Date: 20170207
  Serious: No
  Sender: FDA-Public Use
  Company Number: US-ACTAVIS-2015-21038

PATIENT
  Age: 61 Year
  Sex: Female

DRUGS (1)
  1. GABAPENTIN (AELLC) [Suspect]
     Active Substance: GABAPENTIN
     Dosage: 300 MG, UNKNOWN
     Route: 065

REACTIONS (1)
  - Drug ineffective [Unknown]
